FAERS Safety Report 18652201 (Version 1)
Quarter: 2020Q4

REPORT INFORMATION
  Report Type: Spontaneous
  Country: US (occurrence: US)
  Receive Date: 20201222
  Receipt Date: 20201222
  Transmission Date: 20210114
  Serious: Yes (Other)
  Sender: FDA-Public Use
  Company Number: US-ELI_LILLY_AND_COMPANY-US202012010583

PATIENT
  Age: 70 Year
  Sex: Male
  Weight: 96.15 kg

DRUGS (4)
  1. PREDNISONE. [Concomitant]
     Active Substance: PREDNISONE
     Indication: MYASTHENIA GRAVIS
     Dosage: UNK, UNKNOWN
     Route: 065
     Dates: start: 201912
  2. NORMAL SALINE [Concomitant]
     Active Substance: SODIUM CHLORIDE
     Indication: MEDICATION DILUTION
     Dosage: 250 ML, SINGLE
     Route: 041
     Dates: start: 20201216, end: 20201216
  3. BAMLANIVIMAB 700MG [Suspect]
     Active Substance: BAMLANIVIMAB
     Indication: COVID-19
     Dosage: 700 MG, SINGLE
     Route: 041
     Dates: start: 20201216, end: 20201216
  4. NORMAL SALINE [Concomitant]
     Active Substance: SODIUM CHLORIDE
     Dosage: 1000 ML, SINGLE
     Route: 041
     Dates: start: 20201216, end: 20201216

REACTIONS (7)
  - Malaise [Unknown]
  - Heart rate decreased [Unknown]
  - Pallor [Unknown]
  - Blood pressure decreased [Unknown]
  - Depressed level of consciousness [Unknown]
  - Hyperhidrosis [Unknown]
  - Oxygen saturation decreased [Unknown]

NARRATIVE: CASE EVENT DATE: 20201216
